FAERS Safety Report 8725257 (Version 2)
Quarter: 2012Q4

REPORT INFORMATION
  Report Type: 
  Country: US (occurrence: US)
  Receive Date: 20120815
  Receipt Date: 20120925
  Transmission Date: 20130627
  Serious: Yes (Death)
  Sender: FDA-Public Use
  Company Number: US-CELGENEUS-163-21660-12081346

PATIENT
  Age: 61 Year
  Sex: Male

DRUGS (1)
  1. ABRAXANE [Suspect]
     Indication: PANCREATIC CANCER
     Route: 065
     Dates: end: 20120809

REACTIONS (1)
  - Cardiac arrest [Fatal]
